FAERS Safety Report 15625735 (Version 1)
Quarter: 2018Q4

REPORT INFORMATION
  Report Type: Spontaneous
  Country: US (occurrence: US)
  Receive Date: 20181115
  Receipt Date: 20181115
  Transmission Date: 20190205
  Serious: Yes (Other)
  Sender: FDA-Public Use
  Company Number: None

PATIENT
  Age: 47 Year
  Sex: Male
  Weight: 65 kg

DRUGS (1)
  1. TENOFOVIR DISPROXIL FUMARATE [Suspect]
     Active Substance: TENOFOVIR DISOPROXIL FUMARATE
     Indication: HEPATITIS B
     Route: 048
     Dates: start: 20181010, end: 20181026

REACTIONS (9)
  - Abnormal behaviour [None]
  - Rash [None]
  - Acne [None]
  - Schizophreniform disorder [None]
  - Hypophagia [None]
  - Therapy cessation [None]
  - Insomnia [None]
  - Therapy change [None]
  - Mood swings [None]

NARRATIVE: CASE EVENT DATE: 20181010
